FAERS Safety Report 20180851 (Version 5)
Quarter: 2023Q4

REPORT INFORMATION
  Report Type: Spontaneous
  Country: US (occurrence: US)
  Receive Date: 20211214
  Receipt Date: 20231223
  Transmission Date: 20240110
  Serious: Yes (Hospitalization, Other)
  Sender: FDA-Public Use
  Company Number: US-Accord-247151

PATIENT
  Age: 66 Year
  Sex: Female
  Weight: 155.6 kg

DRUGS (3)
  1. DOCETAXEL [Suspect]
     Active Substance: DOCETAXEL\DOCETAXEL ANHYDROUS
     Indication: Breast cancer
     Dosage: 250ML SODIUM CHLORIDE 0.9% SOLUTION; CYCLES 1 AND 2: 75 MG/M2 AND CYCLES 3 AND 4: 56.25 MG/M2
     Route: 042
     Dates: start: 20191121, end: 20200213
  2. DEXAMETHASONE [Suspect]
     Active Substance: DEXAMETHASONE
     Indication: Breast cancer
     Dosage: CYCLES 1 AND 2: 75 MG/M2 AND CYCLES 3 AND 4: 56.25 MG/M2
     Dates: start: 20191121, end: 20200213
  3. CYCLOPHOSPHAMIDE [Suspect]
     Active Substance: CYCLOPHOSPHAMIDE
     Indication: Breast cancer
     Dosage: CYCLES 1 AND 2: 75 MG/M2 AND CYCLES 3 AND 4: 56.25 MG/M2
     Dates: start: 20191121, end: 20200213

REACTIONS (3)
  - Cataract [Unknown]
  - Dry eye [Unknown]
  - Dacryostenosis acquired [Not Recovered/Not Resolved]

NARRATIVE: CASE EVENT DATE: 20200101
